FAERS Safety Report 5205467-7 (Version None)
Quarter: 2006Q4

REPORT INFORMATION
  Report Type: 
  Country: None (occurrence: None)
  Receive Date: 20061027
  Receipt Date: 20060403
  Transmission Date: 20070319
  Serious: Yes (Other)
  Sender: FDA-Public Use
  Company Number: HQWYE087613AUG03

PATIENT
  Age: 59 Year
  Sex: Female
  Weight: 83.99 kg

DRUGS (5)
  1. PREMARIN [Suspect]
     Indication: MENOPAUSAL SYMPTOMS
     Dosage: 0.625MG DAILY, ORAL
     Route: 048
     Dates: start: 19940822, end: 19960901
  2. PREMPRO [Suspect]
     Indication: HORMONE REPLACEMENT THERAPY
     Dosage: SEE IMAGE
     Route: 048
     Dates: start: 19960901, end: 20020610
  3. PRINIVIL [Concomitant]
  4. DYAZIDE [Concomitant]
  5. CLARITIN [Concomitant]

REACTIONS (1)
  - BREAST CANCER [None]
